FAERS Safety Report 7077744-9 (Version None)
Quarter: 2010Q4

REPORT INFORMATION
  Report Type: 
  Country: None (occurrence: None)
  Receive Date: 20101101
  Receipt Date: 20101019
  Transmission Date: 20110411
  Serious: Yes (Death)
  Sender: FDA-Public Use
  Company Number: US-MYLANLABS-2010S1019384

PATIENT
  Age: 58 Year
  Sex: Female

DRUGS (5)
  1. ESCITALOPRAM OXALATE [Suspect]
     Indication: DEPRESSION
     Route: 065
  2. TRAZODONE [Suspect]
     Indication: DEPRESSION
     Route: 065
  3. FLUOXETINE [Suspect]
     Indication: DEPRESSION
     Route: 065
  4. TEMAZEPAM [Concomitant]
     Indication: DEPRESSION
     Route: 065
  5. BUSPIRONE HCL [Concomitant]
     Indication: DEPRESSION
     Route: 065

REACTIONS (4)
  - CARDIAC ARREST [None]
  - LONG QT SYNDROME [None]
  - SINUS TACHYCARDIA [None]
  - TORSADE DE POINTES [None]
